FAERS Safety Report 19502886 (Version 1)
Quarter: 2021Q3

REPORT INFORMATION
  Report Type: Spontaneous
  Country: GR (occurrence: GR)
  Receive Date: 20210707
  Receipt Date: 20210707
  Transmission Date: 20211014
  Serious: Yes (Other)
  Sender: FDA-Public Use
  Company Number: GR-PFIZER INC-2021755581

PATIENT
  Age: 42 Year
  Sex: Male

DRUGS (6)
  1. XANAX [Suspect]
     Active Substance: ALPRAZOLAM
     Indication: MYOCARDITIS
     Dosage: 0.5 MG, 2X/DAY (MORNING AND EVENING)
  2. XANAX [Suspect]
     Active Substance: ALPRAZOLAM
     Indication: STRESS
  3. XANAX [Suspect]
     Active Substance: ALPRAZOLAM
     Indication: DEPRESSION
  4. ZOLOFT [Suspect]
     Active Substance: SERTRALINE HYDROCHLORIDE
     Indication: MYOCARDITIS
     Dosage: 50 MG
  5. ZOLOFT [Suspect]
     Active Substance: SERTRALINE HYDROCHLORIDE
     Indication: DEPRESSION
  6. ZOLOFT [Suspect]
     Active Substance: SERTRALINE HYDROCHLORIDE
     Indication: STRESS

REACTIONS (4)
  - Erythema [Unknown]
  - Pulpitis dental [Unknown]
  - Hypersensitivity [Unknown]
  - Acne [Unknown]
